FAERS Safety Report 4308165-7 (Version None)
Quarter: 2004Q1

REPORT INFORMATION
  Report Type: 
  Country: None (occurrence: None)
  Receive Date: 20040301
  Receipt Date: 20030714
  Transmission Date: 20041129
  Serious: No
  Sender: FDA-Public Use
  Company Number: US-BRISTOL-MYERS SQUIBB COMPANY-12325478

PATIENT
  Age: 81 Year
  Sex: Female
  Weight: 68 kg

DRUGS (11)
  1. GLUCOPHAGE [Suspect]
     Indication: DIABETES MELLITUS NON-INSULIN-DEPENDENT
     Route: 048
     Dates: start: 20030227
  2. AVALIDE [Concomitant]
  3. LASIX [Concomitant]
  4. POTASSIUM [Concomitant]
  5. LANOXIN [Concomitant]
  6. DARVOCET [Concomitant]
  7. MAGNESIUM [Concomitant]
  8. MULTI-VITAMIN [Concomitant]
  9. LUTEIN [Concomitant]
  10. SYNTHROID [Concomitant]
  11. ALLEGRA [Concomitant]

REACTIONS (1)
  - DIARRHOEA [None]
